FAERS Safety Report 24409297 (Version 4)
Quarter: 2024Q4

REPORT INFORMATION
  Report Type: Spontaneous
  Country: FR (occurrence: FR)
  Receive Date: 20241008
  Receipt Date: 20241101
  Transmission Date: 20250115
  Serious: Yes (Death, Hospitalization, Other)
  Sender: AUROBINDO
  Company Number: FR-AUROBINDO-AUR-APL-2024-044579

PATIENT
  Age: 35 Year
  Sex: Male
  Weight: 50 kg

DRUGS (18)
  1. EPHEDRINE [Suspect]
     Active Substance: EPHEDRINE
     Indication: Product used for unknown indication
     Dosage: UNK
     Route: 065
  2. OXAZEPAM [Suspect]
     Active Substance: OXAZEPAM
     Indication: Product used for unknown indication
     Dosage: UNK
     Route: 065
  3. PRAZEPAM [Suspect]
     Active Substance: PRAZEPAM
     Indication: Post-traumatic stress disorder
     Dosage: UNK
     Route: 065
  4. PRAZEPAM [Suspect]
     Active Substance: PRAZEPAM
     Indication: Aggression
  5. PRAZEPAM [Suspect]
     Active Substance: PRAZEPAM
     Indication: Depression
  6. PRAZEPAM [Suspect]
     Active Substance: PRAZEPAM
     Indication: Schizophrenia
  7. PRAZEPAM [Suspect]
     Active Substance: PRAZEPAM
     Indication: Dependence
  8. LOXAPINE [Suspect]
     Active Substance: LOXAPINE
     Indication: Post-traumatic stress disorder
     Dosage: UNK
     Route: 065
  9. ARIPIPRAZOLE [Suspect]
     Active Substance: ARIPIPRAZOLE
     Indication: Post-traumatic stress disorder
     Dosage: UNK
     Route: 065
  10. PHENYLPROPANOLAMINE [Suspect]
     Active Substance: PHENYLPROPANOLAMINE
     Indication: Product used for unknown indication
     Dosage: UNK
     Route: 065
  11. PHENYLPROPANOLAMINE [Suspect]
     Active Substance: PHENYLPROPANOLAMINE
     Indication: Product used for unknown indication
     Dosage: UNK
     Route: 065
  12. NORDAZEPAM [Suspect]
     Active Substance: NORDAZEPAM
     Indication: Product used for unknown indication
     Dosage: UNK
     Route: 065
  13. TROPATEPINE [Suspect]
     Active Substance: TROPATEPINE
     Indication: Post-traumatic stress disorder
     Dosage: UNK
     Route: 065
  14. LYSERGIDE [Concomitant]
     Active Substance: LYSERGIDE
     Indication: Product used for unknown indication
     Dosage: UNK
     Route: 065
  15. PSILOCYBIN [Concomitant]
     Active Substance: PSILOCYBIN
     Indication: Product used for unknown indication
     Dosage: UNK
     Route: 065
  16. PSEUDOEPHEDRINE [Concomitant]
     Active Substance: PSEUDOEPHEDRINE
     Indication: Product used for unknown indication
     Dosage: UNK
     Route: 065
  17. KETAMINE [Concomitant]
     Active Substance: KETAMINE
     Indication: Product used for unknown indication
     Dosage: UNK
     Route: 065
  18. MIDOMAFETAMINE [Concomitant]
     Active Substance: MIDOMAFETAMINE
     Indication: Product used for unknown indication
     Dosage: UNK
     Route: 065

REACTIONS (5)
  - Delirium [Fatal]
  - Toxicity to various agents [Fatal]
  - Intentional product misuse [Fatal]
  - Confusional state [Fatal]
  - Drug abuse [Unknown]
